FAERS Safety Report 15406139 (Version 1)
Quarter: 2018Q3

REPORT INFORMATION
  Report Type: Report from Study
  Country: US (occurrence: US)
  Receive Date: 20180920
  Receipt Date: 20180920
  Transmission Date: 20181010
  Serious: Yes (Other)
  Sender: FDA-Public Use
  Company Number: US-GILEAD-2018-0363961

PATIENT
  Age: 53 Year
  Sex: Female

DRUGS (3)
  1. ADEMPAS [Concomitant]
     Active Substance: RIOCIGUAT
  2. AMBRISENTAN [Suspect]
     Active Substance: AMBRISENTAN
     Indication: PRODUCT USED FOR UNKNOWN INDICATION
     Dosage: 5 MG, QD
     Route: 065
  3. XARELTO [Concomitant]
     Active Substance: RIVAROXABAN

REACTIONS (6)
  - Cardiomegaly [Unknown]
  - Pulmonary thrombosis [Unknown]
  - Anaemia [Unknown]
  - Nasal congestion [Unknown]
  - Fluid retention [Unknown]
  - Hot flush [Unknown]
